FAERS Safety Report 14937566 (Version 1)
Quarter: 2018Q2

REPORT INFORMATION
  Report Type: Spontaneous
  Country: DE (occurrence: DE)
  Receive Date: 20180525
  Receipt Date: 20180525
  Transmission Date: 20180711
  Serious: Yes (Other)
  Sender: FDA-Public Use
  Company Number: DE-TEVA-2018-DE-896963

PATIENT
  Age: 85 Year
  Sex: Female

DRUGS (1)
  1. AMOXICILLIN FILMTABLETTE [Suspect]
     Active Substance: AMOXICILLIN
     Route: 048

REACTIONS (5)
  - Cough [Recovered/Resolved]
  - Product use complaint [Unknown]
  - Throat irritation [Unknown]
  - Retching [Recovered/Resolved]
  - Choking [Recovered/Resolved]
